FAERS Safety Report 24414278 (Version 1)
Quarter: 2024Q4

REPORT INFORMATION
  Report Type: Report from Study
  Country: ZA (occurrence: ZA)
  Receive Date: 20241009
  Receipt Date: 20241009
  Transmission Date: 20250115
  Serious: Yes (Hospitalization)
  Sender: ALEXION PHARMACEUTICALS
  Company Number: ZA-AstraZeneca-CH-00708851A

PATIENT
  Age: 74 Year

DRUGS (24)
  1. BUDESONIDE\FORMOTEROL [Suspect]
     Active Substance: BUDESONIDE\FORMOTEROL
     Indication: Asthma
     Dosage: 60 MILLIGRAM
  2. BUDESONIDE\FORMOTEROL [Suspect]
     Active Substance: BUDESONIDE\FORMOTEROL
     Dosage: 60 MILLIGRAM
  3. BUDESONIDE\FORMOTEROL [Suspect]
     Active Substance: BUDESONIDE\FORMOTEROL
     Dosage: 60 MILLIGRAM
  4. BUDESONIDE\FORMOTEROL [Suspect]
     Active Substance: BUDESONIDE\FORMOTEROL
     Dosage: 60 MILLIGRAM
  5. Spiractin [Concomitant]
     Indication: Hypertension
     Dosage: 25 MILLIGRAM
  6. Spiractin [Concomitant]
     Dosage: 25 MILLIGRAM
  7. METFORMIN HYDROCHLORIDE\VILDAGLIPTIN [Concomitant]
     Active Substance: METFORMIN HYDROCHLORIDE\VILDAGLIPTIN
     Indication: Diabetes mellitus
  8. METFORMIN HYDROCHLORIDE\VILDAGLIPTIN [Concomitant]
     Active Substance: METFORMIN HYDROCHLORIDE\VILDAGLIPTIN
  9. VALSARTAN [Concomitant]
     Active Substance: VALSARTAN
     Indication: Hypertension
  10. VALSARTAN [Concomitant]
     Active Substance: VALSARTAN
  11. MONTELUKAST SODIUM [Concomitant]
     Active Substance: MONTELUKAST SODIUM
     Indication: Asthma
     Dosage: 10 MILLIGRAM
  12. MONTELUKAST SODIUM [Concomitant]
     Active Substance: MONTELUKAST SODIUM
     Dosage: 10 MILLIGRAM
  13. CARDURA XL [Concomitant]
     Active Substance: DOXAZOSIN MESYLATE
  14. CARDURA XL [Concomitant]
     Active Substance: DOXAZOSIN MESYLATE
  15. AMLODIPINE BESYLATE [Concomitant]
     Active Substance: AMLODIPINE BESYLATE
     Indication: Hypertension
     Dosage: 10 MILLIGRAM
  16. AMLODIPINE BESYLATE [Concomitant]
     Active Substance: AMLODIPINE BESYLATE
     Dosage: 10 MILLIGRAM
  17. Pantocid [Concomitant]
     Indication: Ulcer
  18. Pantocid [Concomitant]
  19. FEROVANCE [Concomitant]
  20. FEROVANCE [Concomitant]
  21. FEROVANCE [Concomitant]
  22. FEROVANCE [Concomitant]
  23. Allecet [Concomitant]
  24. Allecet [Concomitant]

REACTIONS (1)
  - Illness [Unknown]
